FAERS Safety Report 14282780 (Version 1)
Quarter: 2017Q4

REPORT INFORMATION
  Report Type: Spontaneous
  Country: US (occurrence: US)
  Receive Date: 20171213
  Receipt Date: 20171213
  Transmission Date: 20180321
  Serious: Yes (Other)
  Sender: FDA-Public Use
  Company Number: US-STANDARD HOMEOPATHIC COMPANY-2037146

PATIENT
  Sex: Male

DRUGS (1)
  1. HYLAND^S SINUS TABLETS [Suspect]
     Active Substance: HOMEOPATHICS
     Indication: NASOPHARYNGITIS
     Route: 048
     Dates: start: 2017, end: 2017

REACTIONS (2)
  - Restless legs syndrome [None]
  - Tachycardia [None]

NARRATIVE: CASE EVENT DATE: 201711
